FAERS Safety Report 7748248-2 (Version None)
Quarter: 2011Q3

REPORT INFORMATION
  Report Type: 
  Country: None (occurrence: None)
  Receive Date: 20110913
  Receipt Date: 20110908
  Transmission Date: 20111222
  Serious: Yes (Other)
  Sender: FDA-Public Use
  Company Number: US-PFIZER INC-2011175411

PATIENT
  Sex: Male
  Weight: 123 kg

DRUGS (6)
  1. CHLORZOXAZONE [Suspect]
     Indication: SPINAL FRACTURE
     Dosage: 750 MG, AS NEEDED
     Route: 048
     Dates: end: 20110730
  2. ZOLOFT [Concomitant]
     Dosage: 50 MG, 1X/DAY
  3. LYRICA [Suspect]
     Indication: PAIN MANAGEMENT
     Dosage: 50 MG, 3X/DAY
     Route: 048
     Dates: end: 20110831
  4. ENALAPRIL [Concomitant]
     Indication: BLOOD PRESSURE ABNORMAL
     Dosage: UNK
  5. LYRICA [Suspect]
     Indication: CONVULSION
     Dosage: 50 MG, 1X/DAY
     Route: 048
     Dates: start: 20110401
  6. CHLORZOXAZONE [Suspect]
     Indication: MUSCLE SPASMS

REACTIONS (4)
  - VISION BLURRED [None]
  - WEIGHT INCREASED [None]
  - HEART RATE INCREASED [None]
  - TREMOR [None]
